FAERS Safety Report 11461923 (Version 1)
Quarter: 2015Q3

REPORT INFORMATION
  Report Type: Spontaneous
  Country: US (occurrence: US)
  Receive Date: 20150831
  Receipt Date: 20150831
  Transmission Date: 20151125
  Serious: Yes (Hospitalization)
  Sender: FDA-Public Use
  Company Number: US-ELI_LILLY_AND_COMPANY-US201009003685

PATIENT
  Sex: Female

DRUGS (2)
  1. CYMBALTA [Suspect]
     Active Substance: DULOXETINE HYDROCHLORIDE
     Indication: POST LAMINECTOMY SYNDROME
     Dosage: 30 MG, UNK
     Dates: start: 20100901
  2. CYMBALTA [Suspect]
     Active Substance: DULOXETINE HYDROCHLORIDE
     Dosage: 60 MG, UNK
     Dates: end: 20100910

REACTIONS (2)
  - Panic attack [Unknown]
  - Off label use [Unknown]

NARRATIVE: CASE EVENT DATE: 20100901
